FAERS Safety Report 7385475-0 (Version None)
Quarter: 2011Q1

REPORT INFORMATION
  Report Type: 
  Country: None (occurrence: None)
  Receive Date: 20110330
  Receipt Date: 20110103
  Transmission Date: 20110831
  Serious: Yes (Other)
  Sender: FDA-Public Use
  Company Number: US-AMGEN-USASP2011000144

PATIENT
  Age: 83 Year
  Sex: Female
  Weight: 80 kg

DRUGS (12)
  1. INSULIN [Concomitant]
  2. NPLATE [Suspect]
     Indication: IDIOPATHIC THROMBOCYTOPENIC PURPURA
     Dosage: 415.9 A?G, QWK
     Dates: start: 20101213
  3. FLONASE [Concomitant]
  4. NORVASC [Concomitant]
  5. DECADRON [Concomitant]
  6. NPLATE [Suspect]
     Dates: start: 20101213
  7. LIPITOR [Concomitant]
  8. LOTREL [Concomitant]
  9. DIOVAN [Concomitant]
  10. PEPCID [Concomitant]
  11. CALCIUM WITH VITAMIN D [Concomitant]
  12. MULTIVITAMIN [Concomitant]

REACTIONS (1)
  - DRUG INEFFECTIVE [None]
